FAERS Safety Report 15151330 (Version 1)
Quarter: 2018Q3

REPORT INFORMATION
  Report Type: Spontaneous
  Country: US (occurrence: US)
  Receive Date: 20180716
  Receipt Date: 20180716
  Transmission Date: 20181010
  Serious: No
  Sender: FDA-Public Use
  Company Number: US-BIOVERATIV-2018BV000454

PATIENT
  Sex: Male
  Weight: 80 kg

DRUGS (2)
  1. ALPROLIX [Suspect]
     Active Substance: EFTRENONACOG ALFA
     Dosage: WHEN NECESSARY
     Route: 042
     Dates: start: 201410
  2. ALPROLIX [Suspect]
     Active Substance: EFTRENONACOG ALFA
     Indication: PRODUCT USED FOR UNKNOWN INDICATION
     Route: 042
     Dates: start: 201410

REACTIONS (1)
  - Haemarthrosis [Recovered/Resolved]
